FAERS Safety Report 8723507 (Version 2)
Quarter: 2013Q4

REPORT INFORMATION
  Report Type: Spontaneous
  Country: US (occurrence: US)
  Receive Date: 20120814
  Receipt Date: 20131101
  Transmission Date: 20140711
  Serious: No
  Sender: FDA-Public Use
  Company Number: US-009507513-0806USA01299

PATIENT
  Age: 73 Year
  Sex: Female

DRUGS (3)
  1. FOSAMAX PLUS D [Suspect]
     Indication: OSTEOPOROSIS
     Dosage: 70MG/2800
     Route: 048
     Dates: start: 200706, end: 20080516
  2. FOSAMAX PLUS D [Suspect]
     Dosage: 1 DF, QW
     Route: 048
     Dates: start: 201106
  3. VITAMINS (UNSPECIFIED) [Concomitant]

REACTIONS (8)
  - Respiratory disorder [Recovering/Resolving]
  - Arthralgia [Recovering/Resolving]
  - Respiratory disorder [Recovered/Resolved]
  - Vitamin D deficiency [Unknown]
  - Spinal compression fracture [Unknown]
  - Back pain [Unknown]
  - Breast atrophy [Not Recovered/Not Resolved]
  - Breast enlargement [Not Recovered/Not Resolved]
